FAERS Safety Report 4437804-5 (Version None)
Quarter: 2004Q3

REPORT INFORMATION
  Report Type: 
  Country: None (occurrence: None)
  Receive Date: 20040831
  Receipt Date: 20040817
  Transmission Date: 20050211
  Serious: Yes (Hospitalization)
  Sender: FDA-Public Use
  Company Number: CA-BRISTOL-MYERS SQUIBB COMPANY-12686671

PATIENT
  Age: 84 Year
  Sex: Female

DRUGS (2)
  1. GATIFLOXACIN [Suspect]
     Indication: COUGH
  2. GLYBURIDE [Suspect]
     Indication: DIABETES MELLITUS NON-INSULIN-DEPENDENT
     Dosage: THERAPY WAS INTERRUPTED DUE TO THE EVENT.
     Route: 048

REACTIONS (1)
  - HYPOGLYCAEMIA [None]
